FAERS Safety Report 15548258 (Version 3)
Quarter: 2018Q4

REPORT INFORMATION
  Report Type: Spontaneous
  Country: GB (occurrence: GB)
  Receive Date: 20181024
  Receipt Date: 20181123
  Transmission Date: 20190205
  Serious: Yes (Death, Hospitalization)
  Sender: FDA-Public Use
  Company Number: GB-TEVA-2018-GB-967986

PATIENT
  Age: 86 Year
  Sex: Male
  Weight: 78.1 kg

DRUGS (25)
  1. ENOXAPARIN SODIUM. [Concomitant]
     Active Substance: ENOXAPARIN SODIUM
     Route: 065
  2. ACETYLSALICYLIC ACID [Concomitant]
     Active Substance: ASPIRIN
     Route: 065
  3. METOCLOPRAMIDE. [Concomitant]
     Active Substance: METOCLOPRAMIDE
     Route: 065
  4. PREDNISOLONE SODIUM PHOSPHATE. [Concomitant]
     Active Substance: PREDNISOLONE SODIUM PHOSPHATE
     Route: 065
  5. DIHYDROCODEINE [Concomitant]
     Active Substance: DIHYDROCODEINE
  6. DERMOVATE [Concomitant]
     Active Substance: CLOBETASOL
     Route: 065
  7. MONOFER [Concomitant]
     Active Substance: IRON ISOMALTOSIDE 1000
     Indication: ANAEMIA OF CHRONIC DISEASE
     Route: 042
     Dates: start: 20180831, end: 20180831
  8. RANITIDINE. [Concomitant]
     Active Substance: RANITIDINE
     Route: 065
  9. PARACETAMOL [Concomitant]
     Active Substance: ACETAMINOPHEN
     Route: 065
  10. FOLIC ACID. [Concomitant]
     Active Substance: FOLIC ACID
  11. DIGOXIN. [Concomitant]
     Active Substance: DIGOXIN
     Route: 065
  12. SALMETEROL [Concomitant]
     Active Substance: SALMETEROL
     Route: 065
  13. POTASSIUM PERMANGANATE [Concomitant]
     Active Substance: POTASSIUM PERMANGANATE
     Route: 065
  14. ONDANSETRON [Concomitant]
     Active Substance: ONDANSETRON
     Route: 065
  15. FUROSEMIDE. [Concomitant]
     Active Substance: FUROSEMIDE
     Route: 065
  16. CASSIA [Concomitant]
     Route: 065
  17. SALBUTAMOL [Concomitant]
     Active Substance: ALBUTEROL
  18. PREDNISOLONE. [Suspect]
     Active Substance: PREDNISOLONE
     Indication: HYPERSENSITIVITY VASCULITIS
     Dosage: 30 MILLIGRAM DAILY;
     Route: 065
  19. CALCIUM CARBONATE. [Concomitant]
     Active Substance: CALCIUM CARBONATE
     Route: 065
  20. OXYCODONE [Concomitant]
     Active Substance: OXYCODONE
     Route: 065
  21. CLENIL MODULITE [Concomitant]
     Active Substance: BECLOMETHASONE DIPROPIONATE
     Route: 065
  22. LAXIDO [Concomitant]
     Active Substance: POLYETHYLENE GLYCOL 3350\POTASSIUM CHLORIDE\SODIUM BICARBONATE\SODIUM CHLORIDE
     Route: 065
  23. BISOPROLOL [Concomitant]
     Active Substance: BISOPROLOL
     Route: 065
  24. VALACICLOVIR [Concomitant]
     Active Substance: VALACYCLOVIR HYDROCHLORIDE
     Route: 065
  25. CYCLIZINE [Concomitant]
     Active Substance: CYCLIZINE
     Route: 065

REACTIONS (2)
  - Gastrointestinal haemorrhage [Fatal]
  - Haematemesis [Fatal]

NARRATIVE: CASE EVENT DATE: 20180920
